FAERS Safety Report 8471499 (Version 2)
Quarter: 2013Q1

REPORT INFORMATION
  Report Type: Spontaneous
  Country: DK (occurrence: DK)
  Receive Date: 20120322
  Receipt Date: 20130306
  Transmission Date: 20140127
  Serious: Yes (Hospitalization, Other)
  Sender: FDA-Public Use
  Company Number: PHHY2012DK022895

PATIENT
  Age: 20 Year
  Sex: Male

DRUGS (2)
  1. METHYLPHENIDATE [Suspect]
     Indication: ATTENTION DEFICIT/HYPERACTIVITY DISORDER
     Dosage: 10 MG, DAILY
     Route: 048
  2. TRUXAL [Concomitant]

REACTIONS (9)
  - Myocarditis [Unknown]
  - Pericarditis [Unknown]
  - Pulmonary embolism [Unknown]
  - Chest pain [Unknown]
  - Chronic obstructive pulmonary disease [Unknown]
  - Myocardial infarction [Unknown]
  - Intentional drug misuse [Unknown]
  - Toxicity to various agents [Unknown]
  - Electrocardiogram ST segment elevation [Unknown]
